FAERS Safety Report 9840413 (Version 1)
Quarter: 2013Q4

REPORT INFORMATION
  Report Type: Spontaneous
  Country: US (occurrence: None)
  Receive Date: 20131223
  Receipt Date: 20131223
  Transmission Date: 20140711
  Serious: No
  Sender: FDA-Public Use
  Company Number: 220496LEO

PATIENT
  Age: 58 Year
  Sex: Female

DRUGS (5)
  1. PICATO [Suspect]
     Indication: ACTINIC KERATOSIS
     Dosage: (1 DAILY FOR 2 DAYS), TOPICAL
     Route: 061
     Dates: start: 20130207, end: 20130208
  2. VIT E (TOCOPHEROL) [Concomitant]
  3. FISH OIL (FISH OIL) [Concomitant]
  4. HCTZ (HYDROCHLOROTHIAZIDE) (25 MG) [Concomitant]
  5. LISINOPRIL (LISINOPRIL) (20 MG) [Concomitant]

REACTIONS (3)
  - Application site erythema [None]
  - Application site vesicles [None]
  - Drug administered at inappropriate site [None]
